FAERS Safety Report 6965080-8 (Version None)
Quarter: 2010Q3

REPORT INFORMATION
  Report Type: 
  Country: None (occurrence: None)
  Receive Date: 20100903
  Receipt Date: 20100830
  Transmission Date: 20110219
  Serious: Yes (Death, Other)
  Sender: FDA-Public Use
  Company Number: US-ASTRAZENECA-2010SE41029

PATIENT
  Age: 21 Year
  Sex: Male

DRUGS (6)
  1. SEROQUEL [Suspect]
     Indication: NIGHTMARE
     Route: 048
  2. SEROQUEL [Interacting]
     Indication: ANXIETY
     Route: 048
  3. SEROQUEL [Interacting]
     Indication: POST-TRAUMATIC STRESS DISORDER
     Route: 048
  4. SIX TYPES OF MEDICATIONS [Interacting]
     Indication: NIGHTMARE
  5. SIX TYPES OF MEDICATIONS [Interacting]
     Indication: ANXIETY
  6. SIX TYPES OF MEDICATIONS [Interacting]
     Indication: POST-TRAUMATIC STRESS DISORDER

REACTIONS (4)
  - CARDIAC ARREST [None]
  - DEATH [None]
  - DRUG INTERACTION [None]
  - DRUG TOXICITY [None]
